FAERS Safety Report 23635284 (Version 1)
Quarter: 2024Q1

REPORT INFORMATION
  Report Type: Spontaneous
  Country: JP (occurrence: JP)
  Receive Date: 20240315
  Receipt Date: 20240315
  Transmission Date: 20240410
  Serious: Yes (Other)
  Sender: FDA-Public Use
  Company Number: JP-ViiV Healthcare Limited-81185

PATIENT

DRUGS (1)
  1. ZEFIX [Suspect]
     Active Substance: LAMIVUDINE
     Dosage: UNK

REACTIONS (1)
  - Renal impairment [Unknown]
